FAERS Safety Report 22358167 (Version 1)
Quarter: 2023Q2

REPORT INFORMATION
  Report Type: Spontaneous
  Country: US (occurrence: US)
  Receive Date: 20230524
  Receipt Date: 20230524
  Transmission Date: 20230721
  Serious: Yes (Hospitalization)
  Sender: FDA-Public Use
  Company Number: US-Amarin Pharma  Inc-2023AMR000188

PATIENT
  Sex: Male

DRUGS (3)
  1. VASCEPA [Suspect]
     Active Substance: ICOSAPENT ETHYL
     Indication: Blood cholesterol
  2. TELMISARTAN [Concomitant]
     Active Substance: TELMISARTAN
     Indication: Product used for unknown indication
  3. LIQUID IRON [Concomitant]
     Indication: Product used for unknown indication
     Dosage: 1 TEASPOON

REACTIONS (5)
  - Diverticulitis [Unknown]
  - Poor quality product administered [Unknown]
  - Product physical issue [Unknown]
  - Product odour abnormal [Unknown]
  - Product leakage [Unknown]

NARRATIVE: CASE EVENT DATE: 20230101
